FAERS Safety Report 25386592 (Version 1)
Quarter: 2025Q2

REPORT INFORMATION
  Report Type: Spontaneous
  Country: US (occurrence: US)
  Receive Date: 20250602
  Receipt Date: 20250602
  Transmission Date: 20250716
  Serious: No
  Sender: SANOFI AVENTIS
  Company Number: US-SA-2025SA154355

PATIENT
  Age: 40 Year
  Sex: Female
  Weight: 68.18 kg

DRUGS (6)
  1. DUPIXENT [Suspect]
     Active Substance: DUPILUMAB
     Indication: Eosinophilic oesophagitis
     Dosage: 300 MG, QW
     Route: 058
     Dates: end: 2025
  2. BUDESONIDE [Suspect]
     Active Substance: BUDESONIDE
  3. MINOXIDIL [Concomitant]
     Active Substance: MINOXIDIL
  4. FLUCONAZOLE [Concomitant]
     Active Substance: FLUCONAZOLE
  5. CLOBETASOL PROPIONATE [Concomitant]
     Active Substance: CLOBETASOL PROPIONATE
  6. CEPHALEXIN [Concomitant]
     Active Substance: CEPHALEXIN

REACTIONS (7)
  - Urticaria [Recovering/Resolving]
  - Product dose omission issue [Unknown]
  - Paraesthesia [Unknown]
  - Skin warm [Unknown]
  - Pruritus [Unknown]
  - Erythema [Unknown]
  - Stomatitis [Unknown]

NARRATIVE: CASE EVENT DATE: 20250101
